FAERS Safety Report 23876665 (Version 1)
Quarter: 2024Q2

REPORT INFORMATION
  Report Type: Spontaneous
  Country: JP (occurrence: JP)
  Receive Date: 20240521
  Receipt Date: 20240521
  Transmission Date: 20240715
  Serious: Yes (Hospitalization)
  Sender: FDA-Public Use
  Company Number: JP-NOVOPROD-1215868

PATIENT
  Age: 59 Year
  Sex: Female
  Weight: 69 kg

DRUGS (6)
  1. RYBELSUS [Suspect]
     Active Substance: SEMAGLUTIDE
     Indication: Type 2 diabetes mellitus
     Dosage: 3 MG, QD
     Route: 048
     Dates: start: 20240303
  2. RYBELSUS [Suspect]
     Active Substance: SEMAGLUTIDE
     Dosage: 7 MG, QD
     Route: 048
     Dates: start: 20240407
  3. RYBELSUS [Suspect]
     Active Substance: SEMAGLUTIDE
     Dosage: 3 MG, QD (DOSE DECREASED)
     Route: 048
     Dates: start: 20240421, end: 20240424
  4. CLOPIDOGREL [Concomitant]
     Active Substance: CLOPIDOGREL BISULFATE
     Dosage: 75 MG, QD
     Route: 048
     Dates: start: 202110
  5. AMLODIPINE BESYLATE\AZILSARTAN [Concomitant]
     Active Substance: AMLODIPINE BESYLATE\AZILSARTAN
     Dosage: UNK
     Route: 048
     Dates: start: 20240302
  6. VIVIANT [Concomitant]
     Active Substance: BAZEDOXIFENE
     Dosage: 20 MG, QD
     Route: 048
     Dates: start: 202311

REACTIONS (4)
  - Hyperthyroidism [Recovering/Resolving]
  - Malaise [Recovering/Resolving]
  - Vomiting [Recovering/Resolving]
  - Nausea [Recovering/Resolving]

NARRATIVE: CASE EVENT DATE: 20240406
